FAERS Safety Report 12194809 (Version 1)
Quarter: 2016Q1

REPORT INFORMATION
  Report Type: Spontaneous
  Country: US (occurrence: US)
  Receive Date: 20160321
  Receipt Date: 20160321
  Transmission Date: 20160526
  Serious: No
  Sender: FDA-Public Use
  Company Number: US-GLAXOSMITHKLINE-US2016038918

PATIENT
  Age: 77 Year
  Sex: Female

DRUGS (1)
  1. FLONASE [Suspect]
     Active Substance: FLUTICASONE PROPIONATE
     Indication: HYPERSENSITIVITY
     Dosage: UNK
     Dates: start: 201602, end: 201603

REACTIONS (5)
  - Inappropriate schedule of drug administration [Unknown]
  - Glossitis [Recovered/Resolved]
  - Tongue disorder [Recovered/Resolved]
  - Oral candidiasis [Recovered/Resolved]
  - Discomfort [Recovered/Resolved]
